FAERS Safety Report 8357328 (Version 2)
Quarter: 2012Q4

REPORT INFORMATION
  Report Type: 
  Country: US (occurrence: US)
  Receive Date: 20120127
  Receipt Date: 20120914
  Transmission Date: 20130627
  Serious: Yes (Other)
  Sender: FDA-Public Use
  Company Number: US-BAYER-2012-008056

PATIENT
  Age: 33 Year
  Sex: Female
  Weight: 154.92 kg

DRUGS (28)
  1. YAZ [Suspect]
     Indication: DYSMENORRHOEA
     Dosage: UNK
     Dates: start: 2009
  2. LEVOTHROID [Concomitant]
     Dosage: 0.150 mg, QD
  3. VICODIN HP [Concomitant]
     Indication: PAIN
     Dosage: UNK UNK, PRN
  4. PHENERGAN [Concomitant]
     Dosage: 25 mg, UNK
  5. PSEUDOVENT [Concomitant]
     Indication: COUGH
  6. PSEUDOVENT [Concomitant]
     Indication: NASAL CONGESTION
  7. NAPROSYN [Concomitant]
     Dosage: 500 mg, BID
  8. NASACORT AQ [Concomitant]
     Dosage: 2 puff(s), QD
  9. EFFEXOR XR [Concomitant]
     Dosage: 150 mg, BID,
  10. EFFEXOR XR [Concomitant]
     Dosage: 150 mg, DAILY
     Route: 048
  11. KEPPRA [Concomitant]
     Dosage: 200 mg, BID
  12. KEPPRA [Concomitant]
     Dosage: 750 mg, UNK
  13. KEPPRA [Concomitant]
     Dosage: 1500 mg, UNK
     Route: 048
  14. ZONEGRAN [Concomitant]
     Dosage: 500 mg, UNK
     Route: 048
  15. ZONEGRAN [Concomitant]
     Dosage: 100 mg, DAILY
  16. MAXALT [Concomitant]
     Dosage: 10 mg, PRN
     Route: 048
  17. ANTIVERT [Concomitant]
     Indication: VERTIGO POSITIONAL
  18. TYLENOL [Concomitant]
     Indication: ABDOMINAL PAIN
  19. ROZEREM [Concomitant]
     Dosage: 8 mg, HS
     Route: 048
  20. LEVOTHYROXINE [Concomitant]
     Dosage: 150 ?g,DAILY
     Route: 048
  21. HYDROCODONE W/APAP [Concomitant]
     Dosage: 10/660 mg every 6 hours PRN
     Route: 048
  22. PROMETHAZINE [Concomitant]
     Dosage: 25 mg, every 4-6 hours PRN
     Route: 048
  23. MULTIVITAMIN [Concomitant]
     Dosage: 1 daily
  24. MAGNESIUM OXIDE [Concomitant]
     Dosage: 400 mg,TID, daily
     Route: 048
  25. CALCIUM +VIT D [Concomitant]
     Dosage: 600 mg, DAILY
     Route: 048
  26. SUPER B COMPLEX [Concomitant]
     Dosage: 1 DAILY
     Route: 048
  27. IBUPROFEN [Concomitant]
     Dosage: 800 mg, UNK
  28. MOTRIN [Concomitant]
     Dosage: 800 mg, UNK
     Route: 048

REACTIONS (4)
  - Deep vein thrombosis [None]
  - Muscle spasms [None]
  - Oedema peripheral [None]
  - Pain in extremity [None]
